FAERS Safety Report 10129296 (Version 1)
Quarter: 2014Q2

REPORT INFORMATION
  Report Type: Spontaneous
  Country: US (occurrence: US)
  Receive Date: 20140428
  Receipt Date: 20140428
  Transmission Date: 20141212
  Serious: No
  Sender: FDA-Public Use
  Company Number: US-ABBVIE-14P-163-1206840-00

PATIENT
  Sex: Male

DRUGS (2)
  1. ANDROGEL [Suspect]
     Indication: PRODUCT USED FOR UNKNOWN INDICATION
     Dosage: 1/2 PACKET  (1.25GM)
     Route: 061
  2. ANDROGEL [Suspect]
     Dosage: ONE (1.25GM) PACKET DAILY
     Route: 061

REACTIONS (2)
  - Application site irritation [Recovered/Resolved]
  - Incorrect dose administered [Not Recovered/Not Resolved]
